FAERS Safety Report 7723473-5 (Version None)
Quarter: 2011Q3

REPORT INFORMATION
  Report Type: 
  Country: None (occurrence: None)
  Receive Date: 20110901
  Receipt Date: 20110830
  Transmission Date: 20111222
  Serious: No
  Sender: FDA-Public Use
  Company Number: US-PFIZER INC-2011203143

PATIENT
  Sex: Female
  Weight: 71.202 kg

DRUGS (2)
  1. HYDROCODONE [Interacting]
     Indication: WISDOM TEETH REMOVAL
     Dosage: 500 MG, DAILY
     Dates: start: 20110830
  2. ADVIL LIQUI-GELS [Suspect]
     Indication: WISDOM TEETH REMOVAL
     Dosage: THREE TABLETS
     Route: 048
     Dates: start: 20110830

REACTIONS (2)
  - ABDOMINAL DISCOMFORT [None]
  - DRUG INTERACTION [None]
